FAERS Safety Report 11192786 (Version 1)
Quarter: 2015Q2

REPORT INFORMATION
  Report Type: Spontaneous
  Country: IT (occurrence: IT)
  Receive Date: 20150616
  Receipt Date: 20150616
  Transmission Date: 20150821
  Serious: Yes (Hospitalization)
  Sender: FDA-Public Use
  Company Number: IT-TEVA-569428ACC

PATIENT
  Age: 21 Year
  Sex: Female

DRUGS (3)
  1. LORAZEPAM. [Suspect]
     Active Substance: LORAZEPAM
     Indication: DRUG ABUSE
     Dosage: 80 DOSAGE FORM TOTAL
     Route: 048
  2. QUETIAPINA TEVA ITALIA - 300 MG COMPRESSE A RILASCIO PROLUNGATO [Concomitant]
     Indication: BORDERLINE PERSONALITY DISORDER
     Route: 048
  3. VALDORM - 30 MG CAPSULE [Concomitant]
     Indication: PRODUCT USED FOR UNKNOWN INDICATION

REACTIONS (2)
  - Presyncope [Unknown]
  - Drug abuse [Unknown]

NARRATIVE: CASE EVENT DATE: 20150417
